FAERS Safety Report 8760693 (Version 2)
Quarter: 2012Q4

REPORT INFORMATION
  Report Type: 
  Country: US (occurrence: US)
  Receive Date: 20120830
  Receipt Date: 20121003
  Transmission Date: 20130627
  Serious: Yes (Other)
  Sender: FDA-Public Use
  Company Number: US-JNJFOC-20120810949

PATIENT
  Sex: Male
  Weight: 106.6 kg

DRUGS (23)
  1. XARELTO [Suspect]
     Indication: CEREBROVASCULAR ACCIDENT PROPHYLAXIS
     Route: 048
     Dates: start: 20120716, end: 20120817
  2. XARELTO [Suspect]
     Indication: ATRIAL FIBRILLATION
     Route: 048
     Dates: start: 20120716, end: 20120817
  3. CIALIS [Concomitant]
  4. VOLTAREN [Concomitant]
     Dosage: as needed
  5. MAXAIR [Concomitant]
     Dosage: as needed
     Dates: end: 20120601
  6. OMEPRAZOLE [Concomitant]
  7. AZOR [Concomitant]
     Indication: HYPERTENSION
     Route: 048
     Dates: start: 2011
  8. METOPROLOL [Concomitant]
     Indication: HYPERTENSION
     Route: 048
     Dates: start: 201205
  9. WARFARIN [Concomitant]
     Indication: ANTICOAGULANT THERAPY
     Route: 048
     Dates: start: 20120529, end: 20120615
  10. DIAZEPAM [Concomitant]
     Indication: MUSCLE SPASMS
     Route: 048
     Dates: start: 2011
  11. DIAZEPAM [Concomitant]
     Indication: ARTHRALGIA
     Route: 048
     Dates: start: 2011
  12. DIAZEPAM [Concomitant]
     Indication: BACK PAIN
     Route: 048
     Dates: start: 2011
  13. ALLERGY MEDICATION [Concomitant]
     Indication: MULTIPLE ALLERGIES
     Route: 058
     Dates: start: 2011
  14. LIDOCAINE [Concomitant]
     Dosage: as needed
  15. TRIAMCINOLONE [Concomitant]
  16. FLUTICASONE [Concomitant]
     Dosage: in each nostril
     Dates: end: 20120601
  17. ZYRTEC [Concomitant]
     Dosage: at night
  18. TESTOSTERONE CYPIONATE [Concomitant]
     Dates: end: 20120529
  19. ZANTAC [Concomitant]
  20. PROCTOSOL [Concomitant]
  21. ADVAIR [Concomitant]
     Dosage: as needed
     Dates: start: 20120601
  22. DIAZEPAM [Concomitant]
     Indication: MUSCLE SPASMS
     Dosage: as needed
  23. CEFPROZIL [Concomitant]
     Dates: start: 20120611, end: 20120614

REACTIONS (6)
  - Gait disturbance [Recovering/Resolving]
  - Decreased activity [Recovering/Resolving]
  - Arthralgia [Recovering/Resolving]
  - Back pain [Recovering/Resolving]
  - Abdominal pain upper [Not Recovered/Not Resolved]
  - Dyspepsia [Not Recovered/Not Resolved]
